FAERS Safety Report 9618784 (Version 1)
Quarter: 2013Q4

REPORT INFORMATION
  Report Type: Spontaneous
  Country: US (occurrence: US)
  Receive Date: 20131014
  Receipt Date: 20131014
  Transmission Date: 20140711
  Serious: Yes (Hospitalization, Other)
  Sender: FDA-Public Use
  Company Number: PHEH2013US021143

PATIENT
  Sex: Female

DRUGS (5)
  1. TEGRETOL-XR [Suspect]
     Dosage: 1 DF, DAILY
  2. CARBAMAZEPINE [Suspect]
     Dosage: 2 DF, (ONE IN THE MORNING AND ONE AT NIGHT) DAILY
  3. ATORVASTATIN [Concomitant]
  4. NORTRIPTYLINE [Concomitant]
  5. VITAMIN D [Concomitant]
     Dosage: 100 MG, UNK

REACTIONS (7)
  - Mental disorder [Unknown]
  - Memory impairment [Unknown]
  - Malaise [Unknown]
  - Blister [Unknown]
  - Insomnia [Unknown]
  - Erythema [Unknown]
  - Fatigue [Unknown]
